FAERS Safety Report 4526864-9 (Version None)
Quarter: 2004Q4

REPORT INFORMATION
  Report Type: 
  Country: None (occurrence: None)
  Receive Date: 20041213
  Receipt Date: 20041206
  Transmission Date: 20050328
  Serious: Yes (Other)
  Sender: FDA-Public Use
  Company Number: 2004-11-1673

PATIENT
  Age: 79 Year
  Sex: Male

DRUGS (3)
  1. NASONEX [Suspect]
     Indication: POLYP
     Dosage: 2/NARE BID ORAL
     Route: 048
     Dates: start: 20040801, end: 20040901
  2. ATROVENT [Concomitant]
  3. PULMICORT [Concomitant]

REACTIONS (2)
  - AGEUSIA [None]
  - ANOSMIA [None]
